FAERS Safety Report 15252191 (Version 1)
Quarter: 2018Q3

REPORT INFORMATION
  Report Type: Spontaneous
  Country: CH (occurrence: CH)
  Receive Date: 20180807
  Receipt Date: 20180807
  Transmission Date: 20181010
  Serious: Yes (Other)
  Sender: FDA-Public Use
  Company Number: CH-GEHC-2018CSU002990

PATIENT

DRUGS (1)
  1. OMNISCAN [Suspect]
     Active Substance: GADODIAMIDE
     Indication: GLIOBLASTOMA
     Dosage: 10 ADMINISTRATIONS
     Route: 065

REACTIONS (1)
  - Nuclear magnetic resonance imaging brain abnormal [Unknown]
